FAERS Safety Report 20383307 (Version 1)
Quarter: 2022Q1

REPORT INFORMATION
  Report Type: Spontaneous
  Country: US (occurrence: US)
  Receive Date: 20220127
  Receipt Date: 20220127
  Transmission Date: 20220423
  Serious: No
  Sender: FDA-Public Use
  Company Number: US-TAKEDA-2022TUS004332

PATIENT
  Age: 61 Year
  Sex: Female

DRUGS (1)
  1. GAMMAGARD LIQUID [Suspect]
     Active Substance: HUMAN IMMUNOGLOBULIN G
     Indication: Product used for unknown indication
     Dosage: 2800 MILLIGRAM
     Route: 042

REACTIONS (2)
  - Infusion site extravasation [Unknown]
  - Poor venous access [Unknown]

NARRATIVE: CASE EVENT DATE: 20211230
